FAERS Safety Report 5991056-3 (Version None)
Quarter: 2008Q4

REPORT INFORMATION
  Report Type: 
  Country: None (occurrence: None)
  Receive Date: 20081211
  Receipt Date: 20081128
  Transmission Date: 20090506
  Serious: Yes (Hospitalization)
  Sender: FDA-Public Use
  Company Number: DE-CELGENEUS-062-C5013-08061796

PATIENT
  Sex: Male
  Weight: 60.1 kg

DRUGS (6)
  1. REVLIMID [Suspect]
     Route: 048
     Dates: start: 20070604, end: 20080626
  2. REVLIMID [Suspect]
     Route: 048
     Dates: start: 20080714
  3. PANTOZOL [Concomitant]
     Indication: REFLUX GASTRITIS
     Route: 048
     Dates: start: 20080716
  4. PANTOZOL [Concomitant]
     Route: 051
     Dates: start: 20080701
  5. MAGNETRANS [Concomitant]
     Indication: BLOOD MAGNESIUM INCREASED
     Route: 048
     Dates: start: 20080507
  6. CLEMASTINE FUMARATE [Concomitant]
     Indication: DRUG USE FOR UNKNOWN INDICATION
     Route: 003
     Dates: start: 20080409

REACTIONS (2)
  - ILEUS [None]
  - INGUINAL HERNIA, OBSTRUCTIVE [None]
